FAERS Safety Report 25658808 (Version 1)
Quarter: 2025Q3

REPORT INFORMATION
  Report Type: Spontaneous
  Country: US (occurrence: US)
  Receive Date: 20250808
  Receipt Date: 20250808
  Transmission Date: 20251020
  Serious: No
  Sender: AUROBINDO
  Company Number: US-AUROBINDO-AUR-APL-2025-027222

PATIENT

DRUGS (1)
  1. AUROVELA 1.5/30 [Suspect]
     Active Substance: ETHINYL ESTRADIOL\NORETHINDRONE ACETATE
     Indication: Product used for unknown indication
     Route: 065

REACTIONS (4)
  - Haemorrhagic cyst [Unknown]
  - Heavy menstrual bleeding [Unknown]
  - Muscle spasms [Unknown]
  - Vomiting [Unknown]
